FAERS Safety Report 10084286 (Version 2)
Quarter: 2014Q2

REPORT INFORMATION
  Report Type: Spontaneous
  Country: US (occurrence: US)
  Receive Date: 20140417
  Receipt Date: 20140520
  Transmission Date: 20141212
  Serious: No
  Sender: FDA-Public Use
  Company Number: US-009507513-1404USA007000

PATIENT
  Age: 84 Year
  Sex: Female
  Weight: 61.22 kg

DRUGS (7)
  1. OXYTROL FOR WOMEN [Suspect]
     Indication: POLLAKIURIA
     Dosage: 1 DF, Q4D
     Route: 062
     Dates: start: 201312, end: 201403
  2. OXYTROL FOR WOMEN [Suspect]
     Indication: BLADDER PROLAPSE
  3. LEVOTHYROXINE SODIUM [Concomitant]
     Indication: HYPOTHYROIDISM
     Dosage: UNK, UNKNOWN
  4. CILOSTAZOL [Concomitant]
     Indication: MUSCLE SPASMS
     Dosage: UNK, UNKNOWN
  5. PROPRANOLOL HYDROCHLORIDE [Concomitant]
     Indication: TREMOR
     Dosage: UNK, UNKNOWN
  6. GABAPENTIN [Concomitant]
     Indication: HERPES ZOSTER
     Dosage: UNK, UNKNOWN
  7. OMEPRAZOLE [Concomitant]
     Indication: DYSPEPSIA
     Dosage: UNK, UNKNOWN

REACTIONS (2)
  - Application site pruritus [Recovered/Resolved]
  - Application site erythema [Recovered/Resolved]
